FAERS Safety Report 12637347 (Version 1)
Quarter: 2016Q3

REPORT INFORMATION
  Report Type: Spontaneous
  Country: US (occurrence: US)
  Receive Date: 20160809
  Receipt Date: 20160809
  Transmission Date: 20161109
  Serious: No
  Sender: FDA-Public Use
  Company Number: US-BEH-2015057064

PATIENT
  Age: 44 Year
  Sex: Female
  Weight: 93 kg

DRUGS (28)
  1. DIPHENHYDRAMINE. [Concomitant]
     Active Substance: DIPHENHYDRAMINE
  2. SODIUM CHLORIDE. [Concomitant]
     Active Substance: SODIUM CHLORIDE
  3. OMEPRAZOLE. [Concomitant]
     Active Substance: OMEPRAZOLE
  4. ZYRTEC [Concomitant]
     Active Substance: CETIRIZINE HYDROCHLORIDE
  5. PHENTERMINE. [Concomitant]
     Active Substance: PHENTERMINE
  6. PRIVIGEN [Suspect]
     Active Substance: HUMAN IMMUNOGLOBULIN G
     Route: 042
     Dates: start: 2014
  7. DIFLUCAN [Concomitant]
     Active Substance: FLUCONAZOLE
  8. VICODIN HP [Concomitant]
     Active Substance: ACETAMINOPHEN\HYDROCODONE BITARTRATE
  9. SYMBICORT [Concomitant]
     Active Substance: BUDESONIDE\FORMOTEROL FUMARATE DIHYDRATE
  10. EPIPEN [Concomitant]
     Active Substance: EPINEPHRINE
  11. L-M-X [Concomitant]
  12. CYMBALTA [Concomitant]
     Active Substance: DULOXETINE HYDROCHLORIDE
  13. ALBUTEROL SULFATE. [Concomitant]
     Active Substance: ALBUTEROL SULFATE
  14. MEDICAL CANNIBIS [Concomitant]
  15. SINGULAIR [Concomitant]
     Active Substance: MONTELUKAST SODIUM
  16. THEO-24 ER [Concomitant]
  17. CEFTRIAXONE. [Concomitant]
     Active Substance: CEFTRIAXONE
  18. PRIVIGEN [Suspect]
     Active Substance: HUMAN IMMUNOGLOBULIN G
     Indication: IMMUNODEFICIENCY COMMON VARIABLE
     Route: 042
  19. LEVAQUIN [Concomitant]
     Active Substance: LEVOFLOXACIN
  20. ACETAMINOPHEN. [Concomitant]
     Active Substance: ACETAMINOPHEN
  21. KENALOG-10 [Concomitant]
     Active Substance: TRIAMCINOLONE ACETONIDE
  22. LORAZEPAM. [Concomitant]
     Active Substance: LORAZEPAM
  23. EMLA [Concomitant]
     Active Substance: LIDOCAINE\PRILOCAINE
  24. XOLAIR [Concomitant]
     Active Substance: OMALIZUMAB
  25. AUVI-Q [Concomitant]
     Active Substance: EPINEPHRINE
  26. PREDNISONE. [Concomitant]
     Active Substance: PREDNISONE
  27. LYRICA [Concomitant]
     Active Substance: PREGABALIN
  28. PROAIR HFA [Concomitant]
     Active Substance: ALBUTEROL SULFATE

REACTIONS (2)
  - Urticaria [Recovered/Resolved]
  - Infusion site extravasation [Recovered/Resolved]

NARRATIVE: CASE EVENT DATE: 20151113
